FAERS Safety Report 6938121-1 (Version None)
Quarter: 2010Q3

REPORT INFORMATION
  Report Type: 
  Country: None (occurrence: None)
  Receive Date: 20100824
  Receipt Date: 20100407
  Transmission Date: 20110219
  Serious: No
  Sender: FDA-Public Use
  Company Number: US-BAYER-201018919NA

PATIENT
  Age: 19 Year
  Sex: Female

DRUGS (1)
  1. YAZ [Suspect]
     Indication: ORAL CONTRACEPTION
     Route: 048
     Dates: start: 20100101

REACTIONS (3)
  - ABDOMINAL PAIN [None]
  - AMENORRHOEA [None]
  - PREGNANCY ON ORAL CONTRACEPTIVE [None]
